FAERS Safety Report 7648788-0 (Version None)
Quarter: 2011Q3

REPORT INFORMATION
  Report Type: 
  Country: None (occurrence: None)
  Receive Date: 20110801
  Receipt Date: 20110727
  Transmission Date: 20111222
  Serious: Yes (Death, Other)
  Sender: FDA-Public Use
  Company Number: PHFR2010GB05402

PATIENT
  Sex: Male

DRUGS (5)
  1. LORAZEPAM [Concomitant]
     Dosage: UNK DF, UNK
  2. METHADONE HYDROCHLORIDE [Concomitant]
     Dosage: UNK DF, UNK
  3. CLOZAPINE [Suspect]
     Indication: SCHIZOPHRENIA
     Dosage: UNK UKN, UNK
     Route: 048
     Dates: start: 20100713
  4. DIAZEPAM [Concomitant]
  5. BENZODIAZEPINES [Concomitant]
     Dosage: UNK DF, UNK

REACTIONS (7)
  - SELF-INJURIOUS IDEATION [None]
  - COUGH [None]
  - ANTIPSYCHOTIC DRUG LEVEL INCREASED [None]
  - AGGRESSION [None]
  - DEATH [None]
  - PNEUMONIA [None]
  - AGITATION [None]
